FAERS Safety Report 9565193 (Version 2)
Quarter: 2013Q4

REPORT INFORMATION
  Report Type: Report from Study
  Country: FR (occurrence: FR)
  Receive Date: 20130930
  Receipt Date: 20131001
  Transmission Date: 20140711
  Serious: Yes (Other)
  Sender: FDA-Public Use
  Company Number: FR-PFIZER INC-2013276813

PATIENT
  Age: 11 Year
  Sex: Male

DRUGS (7)
  1. METHYLPREDNISOLONE SODIUM SUCCINATE [Suspect]
     Indication: INTERSTITIAL LUNG DISEASE
     Dosage: 1 G/1.73 M2 X 3
     Route: 040
  2. MYCOPHENOLATE MOFETIL [Suspect]
     Indication: INTERSTITIAL LUNG DISEASE
     Dosage: UNK
  3. CYCLOPHOSPHAMIDE [Suspect]
     Indication: INTERSTITIAL LUNG DISEASE
     Dosage: IV X 6
     Route: 042
  4. AZATHIOPRINE [Suspect]
     Indication: INTERSTITIAL LUNG DISEASE
     Dosage: UNK
  5. CYCLOSPORIN [Suspect]
     Indication: INTERSTITIAL LUNG DISEASE
     Dosage: UNK
     Route: 048
  6. IMMUNOGLOBULINS [Concomitant]
     Indication: INTERSTITIAL LUNG DISEASE
     Dosage: UNK
     Route: 042
  7. OXYGEN [Concomitant]
     Indication: INTERSTITIAL LUNG DISEASE

REACTIONS (6)
  - Osteonecrosis [Unknown]
  - Neurotoxicity [Unknown]
  - Obesity [Unknown]
  - Hypertension [Unknown]
  - Osteoporosis [Unknown]
  - Calcinosis [Unknown]
